FAERS Safety Report 6784743-0 (Version None)
Quarter: 2010Q2

REPORT INFORMATION
  Report Type: 
  Country: None (occurrence: None)
  Receive Date: 20100622
  Receipt Date: 20100608
  Transmission Date: 20101027
  Serious: Yes (Other)
  Sender: FDA-Public Use
  Company Number: PHEH2008US09971

PATIENT
  Sex: Male

DRUGS (22)
  1. AREDIA [Suspect]
     Indication: MULTIPLE MYELOMA
     Dosage: 90 MG, Q 4 WEEKS X 6
     Dates: start: 20010116, end: 20020218
  2. AREDIA [Suspect]
     Dosage: UNK
  3. ZOMETA [Suspect]
     Indication: MULTIPLE MYELOMA
     Dosage: 4 MG, Q 4 WEEKS X 6
     Route: 042
     Dates: start: 20020218
  4. LIPITOR [Suspect]
     Indication: BLOOD CHOLESTEROL INCREASED
     Dosage: UNK
  5. WARFARIN SODIUM [Concomitant]
     Indication: ATRIAL FIBRILLATION
  6. COREG [Concomitant]
     Indication: HYPERTENSION
  7. SPIRONOLACTONE [Concomitant]
     Indication: HYPERTENSION
  8. ALTACE [Concomitant]
  9. PRILOSEC [Concomitant]
  10. AMOXICILLIN [Concomitant]
  11. METRONIDAZOLE [Concomitant]
  12. DEXAMETHASONE ACETATE [Concomitant]
  13. CHLORHEXIDINE [Concomitant]
  14. AVELOX [Concomitant]
  15. AZITHROMYCIN [Concomitant]
  16. HYDROCODONE [Concomitant]
  17. ZOCOR [Concomitant]
  18. AUGMENTIN '125' [Concomitant]
  19. PERIDEX [Concomitant]
     Dosage: UNK
  20. TYLENOL W/ CODEINE NO. 3 [Concomitant]
  21. AMOXIL ^WYETH-AYERST^ [Concomitant]
  22. NORCO [Concomitant]
     Dosage: 7.5/325MG, Q 4 HRS PRN

REACTIONS (54)
  - ANHEDONIA [None]
  - ANXIETY [None]
  - APICECTOMY [None]
  - ARTHRALGIA [None]
  - BONE DISORDER [None]
  - BONE LESION [None]
  - BRUXISM [None]
  - CARPAL TUNNEL SYNDROME [None]
  - CERVICOBRACHIAL SYNDROME [None]
  - CONTRAST MEDIA REACTION [None]
  - CONTUSION [None]
  - DISABILITY [None]
  - DISEASE PROGRESSION [None]
  - ENDODONTIC PROCEDURE [None]
  - ERECTILE DYSFUNCTION [None]
  - EXOSTOSIS [None]
  - FACET JOINT BLOCK [None]
  - FALL [None]
  - HEADACHE [None]
  - HYPERBARIC OXYGEN THERAPY [None]
  - HYPERLIPIDAEMIA [None]
  - IMPAIRED HEALING [None]
  - INJURY [None]
  - INTERVERTEBRAL DISC DEGENERATION [None]
  - INTERVERTEBRAL DISC PROTRUSION [None]
  - INTERVERTEBRAL DISC SPACE NARROWING [None]
  - LYMPHADENOPATHY [None]
  - MUSCLE SPASMS [None]
  - MUSCLE TWITCHING [None]
  - MUSCULAR WEAKNESS [None]
  - MUSCULOSKELETAL PAIN [None]
  - NECK PAIN [None]
  - NEURITIS [None]
  - NEUROPATHY PERIPHERAL [None]
  - ORAL CAVITY FISTULA [None]
  - ORAL DISORDER [None]
  - ORAL SURGERY [None]
  - OSTEOMYELITIS [None]
  - OSTEONECROSIS OF JAW [None]
  - PAIN [None]
  - PAIN IN EXTREMITY [None]
  - PAIN IN JAW [None]
  - PARAESTHESIA [None]
  - RADICULITIS CERVICAL [None]
  - ROTATOR CUFF SYNDROME [None]
  - SECONDARY SEQUESTRUM [None]
  - SINUSITIS [None]
  - SKIN LESION EXCISION [None]
  - SPINAL OSTEOARTHRITIS [None]
  - SQUAMOUS CELL CARCINOMA [None]
  - THROMBOCYTOPENIA [None]
  - TOOTH ABSCESS [None]
  - TOOTH EXTRACTION [None]
  - TOOTHACHE [None]
